FAERS Safety Report 6158807-9 (Version None)
Quarter: 2009Q2

REPORT INFORMATION
  Report Type: 
  Country: None (occurrence: None)
  Receive Date: 20090415
  Receipt Date: 20090330
  Transmission Date: 20091009
  Serious: Yes (Hospitalization)
  Sender: FDA-Public Use
  Company Number: F03200900016

PATIENT
  Age: 56 Year
  Sex: Male
  Weight: 66.2252 kg

DRUGS (11)
  1. OXALIPLATIN [Suspect]
     Indication: COLON CANCER METASTATIC
     Dosage: 64 MG/M2 WITH A TOTAL DAILY DOSE OF 116.2MG Q2W - INTRAVENOUS NOS
     Route: 042
     Dates: start: 20060302, end: 20060302
  2. SU-011, 248 - 37.5 MG [Suspect]
     Indication: COLON CANCER METASTATIC
     Dosage: 37.5 MG QD - ORAL
     Route: 048
     Dates: start: 20060302, end: 20060313
  3. SU-011, 248 - 50 MG [Suspect]
     Indication: COLON CANCER METASTATIC
     Dosage: 50 MG QD - ORAL
     Route: 048
     Dates: start: 20060204, end: 20060216
  4. FLUOROURACIL [Suspect]
     Indication: COLON CANCER METASTATIC
     Dosage: 300 MG/M2 Q2W - INTRAVENOUS NOS
     Route: 042
     Dates: start: 20060302, end: 20060302
  5. FLUOROURACIL [Suspect]
     Indication: COLON CANCER METASTATIC
     Dosage: 1800 MG/M2 Q2W - INTRAVENOUS NOS
     Route: 042
     Dates: start: 20060302, end: 20060305
  6. LEUCOVORIN CALCIUM [Suspect]
     Indication: COLON CANCER METASTATIC
     Dosage: 400 MG/M2 Q2W - INTRAVENOUS NOS
     Route: 042
     Dates: start: 20060302, end: 20060302
  7. FERROUS SULFATE TAB [Concomitant]
  8. ESCITALOPRAM OXALATE [Concomitant]
  9. PROMETHAZINE HCL [Concomitant]
  10. ACETAMINOPHEN AND HYDROCODONE BITARTRATE [Concomitant]
  11. BENZONATATE [Concomitant]

REACTIONS (13)
  - ABDOMINAL PAIN [None]
  - BILE DUCT STENOSIS [None]
  - BLOOD BILIRUBIN INCREASED [None]
  - CHILLS [None]
  - COLON CANCER METASTATIC [None]
  - FEBRILE NEUTROPENIA [None]
  - HEPATIC ENZYME INCREASED [None]
  - JAUNDICE [None]
  - JAUNDICE CHOLESTATIC [None]
  - MALIGNANT NEOPLASM PROGRESSION [None]
  - METASTASES TO LIVER [None]
  - PYREXIA [None]
  - WHITE BLOOD CELL COUNT DECREASED [None]
